FAERS Safety Report 10191682 (Version 1)
Quarter: 2014Q2

REPORT INFORMATION
  Report Type: Spontaneous
  Country: US (occurrence: None)
  Receive Date: 20140522
  Receipt Date: 20140522
  Transmission Date: 20141212
  Serious: No
  Sender: FDA-Public Use
  Company Number: None

PATIENT
  Age: 75 Year
  Sex: Female

DRUGS (1)
  1. FORTEO 600 MCG LILLY [Suspect]
     Indication: OSTEOPOROSIS
     Dosage: 20 MCG, DAILY, SUB Q
     Route: 058
     Dates: start: 20131108

REACTIONS (2)
  - Injection site bruising [None]
  - Injection site irritation [None]
